FAERS Safety Report 13663701 (Version 1)
Quarter: 2017Q2

REPORT INFORMATION
  Report Type: Spontaneous
  Country: HU (occurrence: HU)
  Receive Date: 20170619
  Receipt Date: 20170619
  Transmission Date: 20170830
  Serious: Yes (Other)
  Sender: FDA-Public Use
  Company Number: PHHY2017HU089859

PATIENT
  Age: 44 Year
  Sex: Female

DRUGS (1)
  1. NILOTINIB [Suspect]
     Active Substance: NILOTINIB
     Indication: CHRONIC MYELOID LEUKAEMIA
     Dosage: UNK
     Route: 065
     Dates: start: 2007, end: 2009

REACTIONS (4)
  - Arrhythmia [Unknown]
  - Therapy non-responder [Unknown]
  - Pulmonary embolism [Unknown]
  - Thrombosis [Unknown]
